FAERS Safety Report 11814179 (Version 1)
Quarter: 2015Q4

REPORT INFORMATION
  Report Type: Spontaneous
  Country: GB (occurrence: GB)
  Receive Date: 20151209
  Receipt Date: 20151209
  Transmission Date: 20160305
  Serious: Yes (Hospitalization)
  Sender: FDA-Public Use
  Company Number: GB-009507513-1512GBR000542

PATIENT
  Sex: Female

DRUGS (1)
  1. LOSARTAN POTASSIUM. [Suspect]
     Active Substance: LOSARTAN POTASSIUM
     Indication: HYPERTENSION
     Dosage: SINCE LAST 3YRS INITIALLY TAKING 50 MG THEN DOSE INCREASED TO 75 MG ON 12-AUG-2015 AND THEN 100 MG.
     Dates: start: 20150825

REACTIONS (2)
  - Hypertension [Unknown]
  - Palpitations [Unknown]
